FAERS Safety Report 8516504-6 (Version None)
Quarter: 2012Q3

REPORT INFORMATION
  Report Type: 
  Country: None (occurrence: None)
  Receive Date: 20120718
  Receipt Date: 20120715
  Transmission Date: 20120928
  Serious: No
  Sender: FDA-Public Use
  Company Number: US-PFIZER INC-2012170247

PATIENT
  Sex: Female

DRUGS (1)
  1. XANAX [Suspect]
     Dosage: UNK

REACTIONS (5)
  - ANGER [None]
  - ANXIETY [None]
  - RESTLESSNESS [None]
  - FEELING HOT [None]
  - NERVOUSNESS [None]
